FAERS Safety Report 26040239 (Version 1)
Quarter: 2025Q4

REPORT INFORMATION
  Report Type: Spontaneous
  Country: GB (occurrence: GB)
  Receive Date: 20251113
  Receipt Date: 20251113
  Transmission Date: 20260118
  Serious: Yes (Disabling)
  Sender: RANBAXY
  Company Number: GB-MHRA-MED-202510291239418320-MTPNF

PATIENT

DRUGS (1)
  1. CITALOPRAM [Suspect]
     Active Substance: CITALOPRAM
     Indication: Product used for unknown indication
     Dosage: UNK
     Route: 065

REACTIONS (1)
  - Volume blood [Not Recovered/Not Resolved]

NARRATIVE: CASE EVENT DATE: 20250101
